FAERS Safety Report 13404413 (Version 1)
Quarter: 2017Q2

REPORT INFORMATION
  Report Type: Spontaneous
  Country: FR (occurrence: FR)
  Receive Date: 20170405
  Receipt Date: 20170405
  Transmission Date: 20170830
  Serious: Yes (Other)
  Sender: FDA-Public Use
  Company Number: FR-009507513-1703FRA014041

PATIENT
  Sex: Female

DRUGS (2)
  1. DIPROSTENE [Suspect]
     Active Substance: BETAMETHASONE DIPROPIONATE\BETAMETHASONE SODIUM PHOSPHATE
     Dosage: UNK
     Dates: start: 2007
  2. METHOTREXATE. [Suspect]
     Active Substance: METHOTREXATE
     Route: 048

REACTIONS (4)
  - Renal failure [Unknown]
  - Injection site pruritus [Unknown]
  - Tuberculosis [Unknown]
  - Lyme disease [Unknown]
